FAERS Safety Report 11823502 (Version 2)
Quarter: 2016Q1

REPORT INFORMATION
  Report Type: Spontaneous
  Country: US (occurrence: US)
  Receive Date: 20151210
  Receipt Date: 20160113
  Transmission Date: 20160525
  Serious: Yes (Hospitalization)
  Sender: FDA-Public Use
  Company Number: US-HLSUS-2015-US-000032

PATIENT
  Age: 16 Year
  Sex: Male
  Weight: 78.3 kg

DRUGS (5)
  1. TENEX [Concomitant]
     Active Substance: GUANFACINE HYDROCHLORIDE
     Indication: UNEVALUABLE EVENT
     Route: 048
     Dates: start: 2015
  2. CLOZARIL [Suspect]
     Active Substance: CLOZAPINE
     Indication: PSYCHOTIC DISORDER
     Route: 048
     Dates: start: 2015, end: 20151202
  3. NADOLOL. [Concomitant]
     Active Substance: NADOLOL
     Indication: AKATHISIA
     Dosage: 9 AM
     Dates: start: 2015
  4. BENZTROPINE [Concomitant]
     Active Substance: BENZTROPINE
     Indication: DROOLING
     Dosage: QHS
     Route: 048
     Dates: start: 2015
  5. METFORMIN [Concomitant]
     Active Substance: METFORMIN HYDROCHLORIDE
     Indication: WEIGHT INCREASED
     Dates: start: 2015

REACTIONS (1)
  - Agranulocytosis [Recovering/Resolving]

NARRATIVE: CASE EVENT DATE: 20151202
